FAERS Safety Report 8559161 (Version 2)
Quarter: 2012Q4

REPORT INFORMATION
  Report Type: 
  Country: US (occurrence: US)
  Receive Date: 20120511
  Receipt Date: 20121127
  Transmission Date: 20130627
  Serious: Yes (Other)
  Sender: FDA-Public Use
  Company Number: CHPA2012US010105

PATIENT
  Age: 51 Year
  Sex: Female

DRUGS (6)
  1. 4 WAY MENTHOLATED NASAL SPRAY [Suspect]
     Indication: NASAL CONGESTION
     Dosage: UNK, QH
     Route: 045
     Dates: start: 1984
  2. 4 WAY MENTHOLATED NASAL SPRAY [Suspect]
     Dosage: UNK, BID
     Route: 045
  3. AFRIN NASAL SPRAY [Concomitant]
     Indication: NASAL CONGESTION
     Dosage: UNK, UNK
     Route: 045
  4. BENADRYL /OLD FORM/ [Concomitant]
     Indication: MULTIPLE ALLERGIES
     Dosage: UNK, UNK
     Route: 048
  5. DECONGESTANTS AND ANTIALLERGICS [Concomitant]
     Indication: NASAL CONGESTION
     Dosage: UNK, UNK
     Route: 048
  6. AMBIEN [Concomitant]
     Indication: INSOMNIA
     Dosage: UNK, UNK
     Route: 048

REACTIONS (6)
  - Pneumonia [Recovered/Resolved]
  - Depression [Recovered/Resolved]
  - Dyspnoea [Unknown]
  - Disease recurrence [Not Recovered/Not Resolved]
  - Incorrect drug administration duration [Unknown]
  - Overdose [Unknown]
